FAERS Safety Report 15081217 (Version 1)
Quarter: 2018Q2

REPORT INFORMATION
  Report Type: Report from Study
  Country: DE (occurrence: DE)
  Receive Date: 20180628
  Receipt Date: 20180628
  Transmission Date: 20180711
  Serious: Yes (Hospitalization, Other)
  Sender: FDA-Public Use
  Company Number: DE-ROCHE-2141479

PATIENT
  Age: 59 Year
  Sex: Male
  Weight: 75 kg

DRUGS (12)
  1. METHOTREXAT [Concomitant]
     Active Substance: METHOTREXATE
     Route: 065
     Dates: start: 1998, end: 1998
  2. FENISTIL (GERMANY) [Concomitant]
     Indication: PREMEDICATION
     Route: 048
     Dates: start: 20180517, end: 20180518
  3. METHOTREXAT [Concomitant]
     Active Substance: METHOTREXATE
     Route: 065
     Dates: start: 200004, end: 2001
  4. OCRELIZUMAB. [Suspect]
     Active Substance: OCRELIZUMAB
     Indication: MULTIPLE SCLEROSIS
     Route: 042
     Dates: start: 20180518
  5. PREGABALIN. [Concomitant]
     Active Substance: PREGABALIN
     Indication: PAIN
     Route: 048
     Dates: start: 20180416, end: 20180522
  6. DEKRISTOL [Concomitant]
     Active Substance: CHOLECALCIFEROL
     Indication: VITAMIN D DEFICIENCY
     Route: 048
     Dates: start: 201402
  7. DIMETHYL FUMARATE [Concomitant]
     Active Substance: DIMETHYL FUMARATE
     Route: 065
     Dates: start: 20140212, end: 2014
  8. RANITIDIN [Concomitant]
     Active Substance: RANITIDINE HYDROCHLORIDE
     Indication: PREMEDICATION
     Route: 048
     Dates: start: 20180518, end: 20180518
  9. MITOXANTRONE [Concomitant]
     Active Substance: MITOXANTRONE HYDROCHLORIDE
     Route: 065
     Dates: start: 20010814, end: 2004
  10. CARBAMAZEPIN [Suspect]
     Active Substance: CARBAMAZEPINE
     Indication: PAIN
     Route: 065
  11. PREDNISOLUT [Concomitant]
     Active Substance: PREDNISOLONE
     Indication: PREMEDICATION
     Route: 042
     Dates: start: 20180518, end: 20180518
  12. INTERFERON BETA 1A [Concomitant]
     Active Substance: INTERFERON BETA-1A
     Route: 058
     Dates: start: 2001, end: 2001

REACTIONS (3)
  - Overdose [Unknown]
  - Partial seizures [Unknown]
  - Urinary tract infection [Unknown]

NARRATIVE: CASE EVENT DATE: 20180529
